FAERS Safety Report 23593283 (Version 3)
Quarter: 2024Q2

REPORT INFORMATION
  Report Type: Spontaneous
  Country: US (occurrence: US)
  Receive Date: 20240304
  Receipt Date: 20240521
  Transmission Date: 20240716
  Serious: No
  Sender: FDA-Public Use
  Company Number: US-Calliditas-2024CAL00286

PATIENT
  Age: 39 Year
  Sex: Female
  Weight: 94.34 kg

DRUGS (1)
  1. TARPEYO [Suspect]
     Active Substance: BUDESONIDE
     Indication: IgA nephropathy
     Dosage: 16MG (4MG CAPSULES) ONCE DAILY
     Route: 048
     Dates: start: 20240207

REACTIONS (7)
  - Rash [Recovered/Resolved]
  - Vision blurred [Unknown]
  - Diplopia [Unknown]
  - Fatigue [Unknown]
  - Inappropriate schedule of product administration [Unknown]
  - Red blood cell count increased [Unknown]
  - White blood cell count increased [Unknown]
